FAERS Safety Report 22043267 (Version 4)
Quarter: 2025Q4

REPORT INFORMATION
  Report Type: Report from Study
  Country: US (occurrence: US)
  Receive Date: 20230228
  Receipt Date: 20251215
  Transmission Date: 20260117
  Serious: Yes (Other)
  Sender: TAKEDA
  Company Number: US-TAKEDA-2021TUS080575

PATIENT
  Age: 77 Year
  Sex: Male

DRUGS (2)
  1. VEDOLIZUMAB [Suspect]
     Active Substance: VEDOLIZUMAB
     Indication: Crohn^s disease
     Dosage: 300 MILLIGRAM, Q4WEEKS
  2. VEDOLIZUMAB [Suspect]
     Active Substance: VEDOLIZUMAB
     Dosage: 300 MILLIGRAM

REACTIONS (11)
  - Dementia [Unknown]
  - Vascular stent thrombosis [Unknown]
  - Urinary retention [Unknown]
  - Cataract [Unknown]
  - Nephrolithiasis [Unknown]
  - Product dose omission issue [Unknown]
  - Sleep apnoea syndrome [Unknown]
  - Large intestine polyp [Unknown]
  - Carpal tunnel syndrome [Unknown]
  - Arterial occlusive disease [Unknown]
  - Urinary tract infection [Unknown]
